FAERS Safety Report 4506979-1 (Version None)
Quarter: 2004Q4

REPORT INFORMATION
  Report Type: 
  Country: None (occurrence: None)
  Receive Date: 20041117
  Receipt Date: 20041109
  Transmission Date: 20050328
  Serious: Yes (Life-Threatening, Hospitalization)
  Sender: FDA-Public Use
  Company Number: 2004UW23081

PATIENT
  Age: 9 Year
  Sex: Male

DRUGS (4)
  1. PULMICORT [Suspect]
     Indication: CROUP INFECTIOUS
     Dosage: 100 MG UG BID IH
     Route: 055
     Dates: start: 20040501
  2. PULMICORT [Suspect]
     Indication: CROUP INFECTIOUS
     Dosage: 400 UG DAILY IH
     Route: 055
  3. EPIPEN [Concomitant]
  4. BRICANYL [Concomitant]

REACTIONS (2)
  - CROUP INFECTIOUS [None]
  - PHARMACEUTICAL PRODUCT COMPLAINT [None]
